FAERS Safety Report 15881957 (Version 5)
Quarter: 2020Q1

REPORT INFORMATION
  Report Type: Report from Study
  Country: US (occurrence: US)
  Receive Date: 20190128
  Receipt Date: 20200327
  Transmission Date: 20200409
  Serious: Yes (Other)
  Sender: FDA-Public Use
  Company Number: US-SA-2019SA022375

PATIENT
  Age: 72 Year
  Sex: Female

DRUGS (1)
  1. SARILUMAB [Suspect]
     Active Substance: SARILUMAB
     Indication: PRODUCT USED FOR UNKNOWN INDICATION
     Dosage: 200 MG, QOW
     Route: 058
     Dates: start: 201802

REACTIONS (12)
  - Injection site pain [Recovered/Resolved]
  - Fibromyalgia [Unknown]
  - Inflammation [Unknown]
  - Joint stiffness [Unknown]
  - Condition aggravated [Unknown]
  - Injection site pruritus [Recovered/Resolved]
  - Arthralgia [Unknown]
  - Peripheral swelling [Unknown]
  - Rash erythematous [Unknown]
  - Sjogren^s syndrome [Unknown]
  - Injection site erythema [Recovered/Resolved]
  - Pain [Unknown]

NARRATIVE: CASE EVENT DATE: 2018
